FAERS Safety Report 8400286-2 (Version None)
Quarter: 2012Q2

REPORT INFORMATION
  Report Type: 
  Country: None (occurrence: None)
  Receive Date: 20120531
  Receipt Date: 20120529
  Transmission Date: 20120825
  Serious: Yes (Death)
  Sender: FDA-Public Use
  Company Number: US-CELGENEUS-163-21880-12053463

PATIENT
  Sex: Male

DRUGS (13)
  1. ALBUTEROL [Concomitant]
     Dosage: 90 MICROGRAM
     Route: 055
  2. LOVAZA [Concomitant]
     Dosage: 1000 MILLIGRAM
     Route: 048
  3. REVLIMID [Suspect]
     Dosage: 5 MILLIGRAM
     Route: 048
     Dates: start: 20091217, end: 20120101
  4. ASPIRIN [Concomitant]
     Dosage: 81 MILLIGRAM
     Route: 048
  5. LISINOPRIL [Concomitant]
     Dosage: 3.5 MILLIGRAM
     Route: 048
  6. VITAMIN C [Concomitant]
     Dosage: 100 MILLIGRAM
     Route: 048
  7. SPIRIVA [Concomitant]
     Route: 065
  8. FISH OIL [Concomitant]
     Route: 048
  9. LOPRESSOR [Concomitant]
     Dosage: 50 MILLIGRAM
     Route: 048
  10. VITAMIN B-12 [Concomitant]
     Dosage: 1000 MICROGRAM
     Route: 048
  11. FOLIC ACID [Concomitant]
     Dosage: 5 MILLIGRAM
     Route: 048
  12. LEVOTHYROXINE SODIUM [Concomitant]
     Dosage: 25 MICROGRAM
     Route: 048
  13. VITAMIN D [Concomitant]
     Dosage: 1000
     Route: 048

REACTIONS (1)
  - DEATH [None]
